FAERS Safety Report 17502315 (Version 8)
Quarter: 2022Q2

REPORT INFORMATION
  Report Type: Other
  Country: US (occurrence: None)
  Receive Date: 20200305
  Receipt Date: 20220512
  Transmission Date: 20220721
  Serious: Yes (Hospitalization)
  Sender: FDA-Public Use
  Company Number: US-ROCHE-2560659

PATIENT
  Age: 43 Year
  Sex: Male
  Weight: 88.530 kg

DRUGS (16)
  1. OCREVUS [Suspect]
     Active Substance: OCRELIZUMAB
     Indication: Multiple sclerosis
     Dosage: ONGOING: UNKNOWN
     Route: 065
     Dates: start: 20190617
  2. OCREVUS [Suspect]
     Active Substance: OCRELIZUMAB
     Indication: Relapsing-remitting multiple sclerosis
     Dosage: ONGOING: YES
     Route: 042
     Dates: start: 201901
  3. OCREVUS [Suspect]
     Active Substance: OCRELIZUMAB
     Dosage: ONGOING: NO
     Route: 042
     Dates: start: 201806, end: 201806
  4. OCREVUS [Suspect]
     Active Substance: OCRELIZUMAB
     Dosage: HALF DOSE
     Route: 042
     Dates: start: 20220225
  5. OCREVUS [Suspect]
     Active Substance: OCRELIZUMAB
     Dosage: ONGOING: NO
     Route: 042
     Dates: start: 201907
  6. MODAFINIL [Concomitant]
     Active Substance: MODAFINIL
     Indication: Fatigue
     Dosage: ONGOING YES
     Route: 048
     Dates: start: 2019
  7. VITAMIN D3 [Concomitant]
     Active Substance: CHOLECALCIFEROL
     Dosage: ONGOING: YES
     Route: 048
     Dates: start: 2019
  8. VITAMIN D3 [Concomitant]
     Active Substance: CHOLECALCIFEROL
     Route: 048
     Dates: start: 201801
  9. MAGNESIUM [Concomitant]
     Active Substance: MAGNESIUM
     Dosage: ONGOING YES
     Route: 048
     Dates: start: 201711
  10. ZYRTEC [Concomitant]
     Active Substance: CETIRIZINE HYDROCHLORIDE
     Dosage: ONGOING YES
     Route: 048
     Dates: start: 2018
  11. HERBALS\TURMERIC [Concomitant]
     Active Substance: HERBALS\TURMERIC
     Dosage: ONGOING: YES
     Route: 048
     Dates: start: 2019
  12. DIETARY SUPPLEMENT [Concomitant]
     Active Substance: DIETARY SUPPLEMENT
     Dosage: ONGOING: YES
     Route: 048
     Dates: start: 202006
  13. PROVIGIL [Concomitant]
     Active Substance: MODAFINIL
     Indication: Fatigue
     Dosage: ONGOING YES
     Route: 048
     Dates: start: 201910
  14. AMANTADINE [Concomitant]
     Active Substance: AMANTADINE
     Indication: Fatigue
     Route: 048
     Dates: start: 201803, end: 201910
  15. AMPYRA [Concomitant]
     Active Substance: DALFAMPRIDINE
     Indication: Gait disturbance
     Route: 048
     Dates: start: 201805
  16. HOLY BASIL [Concomitant]
     Indication: Inflammation
     Route: 048
     Dates: start: 202006

REACTIONS (20)
  - Herpes zoster [Recovered/Resolved]
  - Pyrexia [Recovered/Resolved]
  - Bell^s palsy [Recovered/Resolved]
  - Gait disturbance [Not Recovered/Not Resolved]
  - Fall [Unknown]
  - Headache [Recovered/Resolved]
  - Dysstasia [Not Recovered/Not Resolved]
  - Lethargy [Recovered/Resolved]
  - Blood test abnormal [Not Recovered/Not Resolved]
  - Muscle spasticity [Not Recovered/Not Resolved]
  - Muscular weakness [Not Recovered/Not Resolved]
  - Fatigue [Not Recovered/Not Resolved]
  - COVID-19 [Recovered/Resolved]
  - Feeling abnormal [Not Recovered/Not Resolved]
  - Dysphagia [Not Recovered/Not Resolved]
  - B-lymphocyte count decreased [Not Recovered/Not Resolved]
  - Asthenia [Unknown]
  - Balance disorder [Unknown]
  - CD19 lymphocytes decreased [Unknown]
  - Off label use [Unknown]

NARRATIVE: CASE EVENT DATE: 20181201
